FAERS Safety Report 8953406 (Version 1)
Quarter: 2012Q4

REPORT INFORMATION
  Report Type: 
  Country: RU (occurrence: RU)
  Receive Date: 20121206
  Receipt Date: 20121206
  Transmission Date: 20130627
  Serious: Yes (Life-Threatening)
  Sender: FDA-Public Use
  Company Number: RU-BAYER-2012-126158

PATIENT
  Age: 29 Year
  Sex: Female

DRUGS (8)
  1. AVELOX [Suspect]
     Route: 048
  2. CAPREOMYCIN [Concomitant]
     Indication: TUBERCULOSIS
  3. PYRAZINAMID [Concomitant]
     Indication: TUBERCULOSIS
  4. TORASEMIDE [Concomitant]
  5. SPIRONOLACTONE [Concomitant]
  6. IVABRADINE [Concomitant]
  7. WARFARIN [Concomitant]
  8. CLOPIDOGREL [Concomitant]

REACTIONS (3)
  - Tachyarrhythmia [Recovered/Resolved]
  - Dyspnoea [Recovered/Resolved]
  - Asthenia [Recovered/Resolved]
